FAERS Safety Report 24550658 (Version 1)
Quarter: 2024Q4

REPORT INFORMATION
  Report Type: Spontaneous
  Country: IL (occurrence: IL)
  Receive Date: 20241025
  Receipt Date: 20241025
  Transmission Date: 20250114
  Serious: No
  Sender: JAZZ
  Company Number: IL-JAZZ PHARMACEUTICALS-2023-IL-024553

PATIENT
  Sex: Male

DRUGS (1)
  1. DEFITELIO [Suspect]
     Active Substance: DEFIBROTIDE SODIUM
     Indication: Venoocclusive disease
     Dosage: 6.25 MILLIGRAM/KILOGRAM, Q6H (TOTAL DOSE 25 MILLIGRAM PER KILOGRAM PER DAY)
     Dates: start: 202311

REACTIONS (1)
  - Off label use [Unknown]
